FAERS Safety Report 5532779-X (Version None)
Quarter: 2007Q4

REPORT INFORMATION
  Report Type: 
  Country: None (occurrence: None)
  Receive Date: 20071130
  Receipt Date: 20071130
  Transmission Date: 20080405
  Serious: No
  Sender: FDA-Public Use
  Company Number: None

PATIENT
  Age: 60 Year
  Sex: Male

DRUGS (1)
  1. VARENICLINE [Suspect]
     Dosage: 1MG BID PO
     Route: 048
     Dates: start: 20070921, end: 20071102

REACTIONS (7)
  - CONFUSIONAL STATE [None]
  - HALLUCINATION [None]
  - MIDDLE INSOMNIA [None]
  - SCHIZOPHRENIA [None]
  - SLEEP DISORDER [None]
  - THINKING ABNORMAL [None]
  - VISUAL DISTURBANCE [None]
